FAERS Safety Report 9239210 (Version 3)
Quarter: 2013Q2

REPORT INFORMATION
  Report Type: Spontaneous
  Country: JP (occurrence: JP)
  Receive Date: 20130418
  Receipt Date: 20130531
  Transmission Date: 20140414
  Serious: Yes (Hospitalization)
  Sender: FDA-Public Use
  Company Number: JP-B.I. PHARMACEUTICALS,INC./RIDGEFIELD-2013-BI-09947NB

PATIENT
  Age: 76 Year
  Sex: Female

DRUGS (3)
  1. BI-SIFROL [Suspect]
     Indication: PARKINSON^S DISEASE
     Dosage: 1 MG
     Dates: start: 201301, end: 20130405
  2. MENESIT [Concomitant]
     Indication: PARKINSON^S DISEASE
     Dosage: 300 MG
     Dates: start: 201301
  3. EXCEGRAN [Concomitant]
     Indication: PARKINSON^S DISEASE
     Dosage: 25 MG
     Dates: start: 201301

REACTIONS (4)
  - Decubitus ulcer [Unknown]
  - Dyspnoea [Recovered/Resolved]
  - Asthma [Recovered/Resolved]
  - Off label use [Unknown]
